FAERS Safety Report 5994981-2 (Version None)
Quarter: 2008Q4

REPORT INFORMATION
  Report Type: 
  Country: None (occurrence: None)
  Receive Date: 20081209
  Receipt Date: 20081003
  Transmission Date: 20090506
  Serious: No
  Sender: FDA-Public Use
  Company Number: 002#1#2008-00697

PATIENT
  Sex: Male

DRUGS (2)
  1. NEUPRO [Suspect]
     Indication: PARKINSON'S DISEASE
     Dosage: 6MG,1 IN 1 D,TRANSDERMAL
     Route: 062
  2. REQUIP [Concomitant]

REACTIONS (1)
  - DRUG EFFECT DECREASED [None]
